FAERS Safety Report 21383789 (Version 1)
Quarter: 2022Q3

REPORT INFORMATION
  Report Type: Spontaneous
  Country: DE (occurrence: None)
  Receive Date: 20220928
  Receipt Date: 20220928
  Transmission Date: 20221026
  Serious: Yes (Other)
  Sender: FDA-Public Use
  Company Number: 2022A327775

PATIENT
  Age: 56 Year
  Sex: Male

DRUGS (5)
  1. BEVESPI AEROSPHERE [Suspect]
     Active Substance: FORMOTEROL FUMARATE\GLYCOPYRROLATE
     Dosage: 7.2 / 5 UG
     Route: 055
  2. BECLOMETHASONE DIPROPIONATE\FORMOTEROL [Concomitant]
     Active Substance: BECLOMETHASONE DIPROPIONATE\FORMOTEROL
     Dosage: 100/6 UG INHALER
     Route: 065
  3. ALBUTEROL [Concomitant]
     Active Substance: ALBUTEROL
     Dosage: METERED-DOSE INHALER IF REQUIRED
     Route: 065
  4. OLODATEROL\TIOTROPIUM [Concomitant]
     Active Substance: OLODATEROL\TIOTROPIUM
     Dosage: 2.5 UG/2.5 UG
     Route: 065
  5. FORMOTEROL/GLYCOPYRRONIUM/BUDESONIDE AEROSPHERE [Concomitant]
     Dosage: 5 / 7.2 / 160 UG
     Route: 065

REACTIONS (1)
  - Condition aggravated [Unknown]
